FAERS Safety Report 7186123-5 (Version None)
Quarter: 2010Q4

REPORT INFORMATION
  Report Type: 
  Country: None (occurrence: None)
  Receive Date: 20101222
  Receipt Date: 20101215
  Transmission Date: 20110411
  Serious: Yes (Hospitalization)
  Sender: FDA-Public Use
  Company Number: JP-PFIZER INC-2010172165

PATIENT
  Age: 70 Year
  Sex: Female

DRUGS (3)
  1. METHYLPREDNISOLONE SODIUM SUCCINATE [Suspect]
     Indication: COLITIS ULCERATIVE
     Dosage: UNK
     Route: 042
  2. PREDNISOLONE [Suspect]
     Indication: COLITIS ULCERATIVE
     Dosage: 15 MG, 1X/DAY
     Route: 048
  3. SALICYLAZOSULFAPYRIDINE [Concomitant]
     Indication: COLITIS ULCERATIVE
     Dosage: 4500 MG, 1X/DAY
     Route: 048

REACTIONS (1)
  - HEPATITIS B [None]
